FAERS Safety Report 7169389-7 (Version None)
Quarter: 2010Q4

REPORT INFORMATION
  Report Type: 
  Country: None (occurrence: None)
  Receive Date: 20101216
  Receipt Date: 20100111
  Transmission Date: 20110411
  Serious: No
  Sender: FDA-Public Use
  Company Number: US-AMGEN-KDL385172

PATIENT

DRUGS (6)
  1. ENBREL [Suspect]
     Indication: PRODUCT USED FOR UNKNOWN INDICATION
     Dosage: 50 MG, QWK
     Route: 058
  2. METHOTREXATE [Concomitant]
     Dosage: 2.5 MG, UNK
     Route: 048
  3. SILDENAFIL CITRATE [Concomitant]
     Dosage: 50 MG, UNK
     Route: 048
  4. SIMVASTATIN [Concomitant]
     Dosage: 20 MG, UNK
     Route: 048
  5. MULTI-VITAMINS [Concomitant]
     Dosage: UNK UNK, UNK
     Route: 048
  6. GLUCOSAMINE [Concomitant]
     Dosage: UNK UNK, UNK
     Route: 048

REACTIONS (1)
  - INFLUENZA LIKE ILLNESS [None]
